FAERS Safety Report 7651051-5 (Version None)
Quarter: 2011Q3

REPORT INFORMATION
  Report Type: 
  Country: None (occurrence: None)
  Receive Date: 20110802
  Receipt Date: 20110801
  Transmission Date: 20111222
  Serious: Yes (Life-Threatening, Other)
  Sender: FDA-Public Use
  Company Number: ES-PFIZER INC-2011094769

PATIENT
  Age: 53 Year
  Sex: Male

DRUGS (1)
  1. VARENICLINE TARTRATE [Suspect]
     Indication: SMOKING CESSATION THERAPY
     Dosage: DOSE ACCORDING TO SMPC
     Route: 048
     Dates: start: 20110112, end: 20110401

REACTIONS (3)
  - ALCOHOLISM [None]
  - SUICIDAL IDEATION [None]
  - DEPRESSION [None]
